FAERS Safety Report 12731046 (Version 2)
Quarter: 2017Q2

REPORT INFORMATION
  Report Type: Spontaneous
  Country: US (occurrence: US)
  Receive Date: 20160912
  Receipt Date: 20170422
  Transmission Date: 20170830
  Serious: No
  Sender: FDA-Public Use
  Company Number: PHEH2016US022388

PATIENT
  Sex: Female

DRUGS (1)
  1. ZORTRESS [Suspect]
     Active Substance: EVEROLIMUS
     Indication: LIVER TRANSPLANT
     Dosage: UNK UNK, TWICE A DAY
     Route: 048

REACTIONS (4)
  - Mouth ulceration [Unknown]
  - Malaise [Unknown]
  - Vulvovaginal discomfort [Unknown]
  - Vaginal infection [Unknown]

NARRATIVE: CASE EVENT DATE: 20160831
